FAERS Safety Report 9934337 (Version 1)
Quarter: 2014Q1

REPORT INFORMATION
  Report Type: Spontaneous
  Country: US (occurrence: US)
  Receive Date: 20140228
  Receipt Date: 20140228
  Transmission Date: 20141002
  Serious: No
  Sender: FDA-Public Use
  Company Number: US-ABBVIE-13P-163-1116119-00

PATIENT
  Age: 49 Year
  Sex: Female

DRUGS (5)
  1. VALPROIC ACID [Suspect]
     Indication: DOPAMINE DYSREGULATION SYNDROME
  2. VALPROIC ACID [Suspect]
     Dosage: 750 MILLIGRAM(S); DAILY
  3. CARBIDOPA/LEVODOPA [Suspect]
     Indication: PARKINSON^S DISEASE
     Route: 048
  4. CITALOPRAM [Suspect]
     Indication: PARKINSON^S DISEASE
  5. ROPINIROLE [Concomitant]
     Indication: PRODUCT USED FOR UNKNOWN INDICATION

REACTIONS (2)
  - Hypersexuality [Unknown]
  - Off label use [Unknown]
